FAERS Safety Report 9323390 (Version 1)
Quarter: 2013Q2

REPORT INFORMATION
  Report Type: Report from Study
  Country: DE (occurrence: DE)
  Receive Date: 20130603
  Receipt Date: 20130603
  Transmission Date: 20140414
  Serious: Yes (Other)
  Sender: FDA-Public Use
  Company Number: DE-JNJFOC-20130514205

PATIENT
  Sex: 0

DRUGS (1)
  1. RISPERDAL [Suspect]
     Indication: PRODUCT USED FOR UNKNOWN INDICATION
     Dosage: 2 - 3 TIMES PER DAY

REACTIONS (4)
  - Parkinsonism [Unknown]
  - Mental retardation [Unknown]
  - Dyskinesia [Unknown]
  - Stress [Unknown]
